FAERS Safety Report 26063689 (Version 1)
Quarter: 2025Q4

REPORT INFORMATION
  Report Type: Spontaneous
  Country: EU (occurrence: EU)
  Receive Date: 20251119
  Receipt Date: 20251119
  Transmission Date: 20260118
  Serious: Yes (Other)
  Sender: AUROBINDO
  Company Number: EU-ASPEN-GLO2021FR003017

PATIENT
  Age: 74 Year
  Sex: Female

DRUGS (7)
  1. ACETAMINOPHEN [Suspect]
     Active Substance: ACETAMINOPHEN
     Indication: Acute generalised exanthematous pustulosis
     Dosage: UNK
     Route: 065
  2. ENOXAPARIN [Interacting]
     Active Substance: ENOXAPARIN
     Indication: Acute generalised exanthematous pustulosis
     Dosage: UNK
     Route: 065
  3. KETOPROFEN [Suspect]
     Active Substance: KETOPROFEN
     Indication: Acute generalised exanthematous pustulosis
     Dosage: UNK
     Route: 065
  4. PANTOPRAZOLE [Suspect]
     Active Substance: PANTOPRAZOLE
     Indication: Acute generalised exanthematous pustulosis
     Dosage: UNK
     Route: 065
  5. PHLOROGLUCINOL [Suspect]
     Active Substance: PHLOROGLUCINOL
     Indication: Acute generalised exanthematous pustulosis
     Dosage: UNK
     Route: 065
  6. DANAPAROID SODIUM [Interacting]
     Active Substance: DANAPAROID SODIUM
     Indication: Acute generalised exanthematous pustulosis
     Dosage: UNK
     Route: 065
  7. FAMOTIDINE [Suspect]
     Active Substance: FAMOTIDINE
     Indication: Acute generalised exanthematous pustulosis
     Route: 065

REACTIONS (3)
  - Acute generalised exanthematous pustulosis [Unknown]
  - Drug interaction [Unknown]
  - Type IV hypersensitivity reaction [Unknown]
